FAERS Safety Report 7357135-3 (Version None)
Quarter: 2011Q1

REPORT INFORMATION
  Report Type: 
  Country: None (occurrence: None)
  Receive Date: 20110308
  Receipt Date: 20110223
  Transmission Date: 20110831
  Serious: Yes (Other)
  Sender: FDA-Public Use
  Company Number: 028085

PATIENT
  Sex: Female

DRUGS (1)
  1. CIMZIA [Suspect]
     Indication: RHEUMATOID ARTHRITIS
     Dosage: 200 MG 1X2 WEEKS, 2-WEEK INTERVALS, SUBCUTANEOUS
     Route: 058
     Dates: start: 20100101, end: 20110201

REACTIONS (2)
  - SKIN REACTION [None]
  - PSORIASIS [None]
